FAERS Safety Report 16366138 (Version 1)
Quarter: 2019Q2

REPORT INFORMATION
  Report Type: Spontaneous
  Country: US (occurrence: US)
  Receive Date: 20190422
  Receipt Date: 20190422
  Transmission Date: 20190711
  Serious: No
  Sender: FDA-Public Use
  Company Number: None

PATIENT
  Age: 64 Year
  Sex: Female

DRUGS (1)
  1. REPATHA [Suspect]
     Active Substance: EVOLOCUMAB
     Dates: start: 2018, end: 201807

REACTIONS (3)
  - Therapy cessation [None]
  - Insurance issue [None]
  - Blood cholesterol increased [None]

NARRATIVE: CASE EVENT DATE: 20190422
